FAERS Safety Report 18669647 (Version 2)
Quarter: 2021Q1

REPORT INFORMATION
  Report Type: Report from Study
  Country: US (occurrence: US)
  Receive Date: 20201223
  Receipt Date: 20210120
  Transmission Date: 20210419
  Serious: Yes (Hospitalization)
  Sender: FDA-Public Use
  Company Number: US-EISAI MEDICAL RESEARCH-EC-2020-084376

PATIENT
  Age: 67 Year
  Sex: Female

DRUGS (3)
  1. LENVIMA [Suspect]
     Active Substance: LENVATINIB
     Indication: ENDOMETRIAL CANCER
     Route: 048
     Dates: start: 20201113, end: 20201130
  2. LENVIMA [Suspect]
     Active Substance: LENVATINIB
     Route: 048
     Dates: start: 20201230, end: 20201231
  3. KEYTRUDA [Concomitant]
     Active Substance: PEMBROLIZUMAB

REACTIONS (11)
  - Headache [Recovered/Resolved]
  - Dysphonia [Unknown]
  - Fluid intake reduced [Unknown]
  - Dyspnoea [Recovered/Resolved]
  - Blood pressure increased [Unknown]
  - Renal impairment [Recovering/Resolving]
  - Tooth extraction [Unknown]
  - Pulmonary embolism [Unknown]
  - Pain [Recovered/Resolved]
  - Oedema peripheral [Unknown]
  - Cough [Unknown]

NARRATIVE: CASE EVENT DATE: 202011
